FAERS Safety Report 8967675 (Version 2)
Quarter: 2013Q1

REPORT INFORMATION
  Report Type: Spontaneous
  Country: US (occurrence: None)
  Receive Date: 20121206
  Receipt Date: 20121227
  Transmission Date: 20140127
  Serious: Yes (Other)
  Sender: FDA-Public Use
  Company Number: JPI-P-026533

PATIENT
  Age: 40 Year
  Sex: Female
  Weight: 63.5 kg

DRUGS (6)
  1. XYREM (500 MILLIGRAM/MILLILITERS, SOLUTION) (SODIUM OXYBATE) [Suspect]
     Indication: NARCOLEPSY
     Route: 048
     Dates: start: 2011
  2. XYREM (500 MILLIGRAM/MILLILITERS, SOLUTION) (SODIUM OXYBATE) [Suspect]
     Indication: SOMNOLENCE
     Route: 048
     Dates: start: 2011
  3. BUPROPION [Concomitant]
  4. DEXMETHYLPHENIDATE [Concomitant]
  5. HYDROCODONE [Concomitant]
  6. LOESTRIN FE [Concomitant]
     Indication: NARCOLEPSY
     Route: 048
     Dates: start: 2011

REACTIONS (5)
  - Breast neoplasm [None]
  - Cataract operation [None]
  - Eye pain [None]
  - Ocular hyperaemia [None]
  - Post procedural complication [None]
